FAERS Safety Report 8415827-9 (Version None)
Quarter: 2012Q2

REPORT INFORMATION
  Report Type: 
  Country: None (occurrence: None)
  Receive Date: 20120530
  Receipt Date: 20120517
  Transmission Date: 20120825
  Serious: Yes (Hospitalization, Disabling, Other)
  Sender: FDA-Public Use
  Company Number: 2012P1011580

PATIENT
  Age: 84 Year
  Sex: Male
  Weight: 77.1115 kg

DRUGS (26)
  1. HUMALOG [Concomitant]
  2. VITAMIN E [Concomitant]
  3. ASPIRIN [Concomitant]
  4. GARLIC [Concomitant]
  5. BIOTIN [Concomitant]
  6. METHYLPREDNISOLONE 4MG TAB [Suspect]
     Indication: MYRINGITIS
     Dosage: 24 MG;X1 8 MG;AM 8 MG;NOON 4 MG;HS 4 MG;QID
     Dates: start: 20120329, end: 20120329
  7. METHYLPREDNISOLONE 4MG TAB [Suspect]
     Indication: MYRINGITIS
     Dosage: 24 MG;X1 8 MG;AM 8 MG;NOON 4 MG;HS 4 MG;QID
     Dates: start: 20120328, end: 20120328
  8. METHYLPREDNISOLONE 4MG TAB [Suspect]
     Indication: MYRINGITIS
     Dosage: 24 MG;X1 8 MG;AM 8 MG;NOON 4 MG;HS 4 MG;QID
     Dates: start: 20120329, end: 20120329
  9. METHYLPREDNISOLONE 4MG TAB [Suspect]
     Indication: MYRINGITIS
     Dosage: 24 MG;X1 8 MG;AM 8 MG;NOON 4 MG;HS 4 MG;QID
     Dates: start: 20120329, end: 20120329
  10. METHYLPREDNISOLONE 4MG TAB [Suspect]
     Indication: MYRINGITIS
     Dosage: 24 MG;X1 8 MG;AM 8 MG;NOON 4 MG;HS 4 MG;QID
     Dates: start: 20120330
  11. FINASTERIDE [Concomitant]
  12. CO-Q10 [Concomitant]
  13. CHONDROITIN SULFATE [Concomitant]
  14. SIMVASTATIN [Concomitant]
  15. ZINC SULFATE [Concomitant]
  16. LISINOPRIL [Concomitant]
  17. ASCORBIC ACID [Concomitant]
  18. ACIDOPHILUS PROBIOTIC [Concomitant]
  19. SAW PALMETTO [Concomitant]
  20. LUTEIN [Concomitant]
  21. CALCIUM [Concomitant]
  22. VITAMIN D [Concomitant]
  23. CHROMIUM CHLORIDE [Concomitant]
  24. FISH OIL [Concomitant]
  25. MAGNESIUM [Concomitant]
  26. MULTI-VITAMIN [Concomitant]

REACTIONS (24)
  - DISORIENTATION [None]
  - DEPRESSION [None]
  - BLOOD GLUCOSE INCREASED [None]
  - ASTHENIA [None]
  - JOINT INJURY [None]
  - DIARRHOEA HAEMORRHAGIC [None]
  - ARTHRALGIA [None]
  - ACTIVITIES OF DAILY LIVING IMPAIRED [None]
  - INCORRECT DOSE ADMINISTERED [None]
  - FALL [None]
  - HYPOPHAGIA [None]
  - ANAEMIA [None]
  - HYPERSOMNIA [None]
  - BACK PAIN [None]
  - SUICIDAL IDEATION [None]
  - CONTUSION [None]
  - POOR QUALITY SLEEP [None]
  - GAIT DISTURBANCE [None]
  - MALAISE [None]
  - DIABETES MELLITUS INADEQUATE CONTROL [None]
  - CHEST PAIN [None]
  - NAUSEA [None]
  - DRUG INEFFECTIVE [None]
  - VISUAL IMPAIRMENT [None]
